FAERS Safety Report 4383682-2 (Version None)
Quarter: 2004Q2

REPORT INFORMATION
  Report Type: 
  Country: None (occurrence: None)
  Receive Date: 20040623
  Receipt Date: 20040526
  Transmission Date: 20050107
  Serious: Yes (Death)
  Sender: FDA-Public Use
  Company Number: DE-GLAXOSMITHKLINE-D0043895A

PATIENT
  Sex: Male

DRUGS (1)
  1. VIANI FORTE [Suspect]
     Route: 055
     Dates: start: 19990101, end: 20030101

REACTIONS (4)
  - CARDIAC FAILURE [None]
  - NERVOUSNESS [None]
  - PALPITATIONS [None]
  - RESTLESSNESS [None]
